FAERS Safety Report 5373576-8 (Version None)
Quarter: 2007Q2

REPORT INFORMATION
  Report Type: 
  Country: None (occurrence: None)
  Receive Date: 20070628
  Receipt Date: 20070328
  Transmission Date: 20071010
  Serious: No
  Sender: FDA-Public Use
  Company Number: US-BAUSCH-2007BL000391

PATIENT
  Age: 69 Year
  Sex: Male

DRUGS (2)
  1. ZYLET [Suspect]
     Indication: EYE INFECTION
     Route: 047
     Dates: start: 20070122, end: 20070126
  2. ^UNSPECIFIED MEDICATIONS^ [Concomitant]

REACTIONS (3)
  - DRUG INEFFECTIVE [None]
  - EYE HAEMORRHAGE [None]
  - PHARMACEUTICAL PRODUCT COMPLAINT [None]
